FAERS Safety Report 8078337-7 (Version None)
Quarter: 2012Q1

REPORT INFORMATION
  Report Type: 
  Country: None (occurrence: None)
  Receive Date: 20120123
  Receipt Date: 20120109
  Transmission Date: 20120608
  Serious: Yes (Death, Other)
  Sender: FDA-Public Use
  Company Number: JPI-P-005581

PATIENT
  Age: 43 Year
  Sex: Female
  Weight: 51.7101 kg

DRUGS (6)
  1. XYREM [Suspect]
     Indication: NARCOLEPSY
     Dosage: 4.5 GM, 1 D, ORAL
     Route: 048
     Dates: end: 20050130
  2. CHLORPHENIRAMINE MALEATE [Suspect]
     Indication: PRODUCT USED FOR UNKNOWN INDICATION
     Dates: end: 20050130
  3. BENZODIAZEPINES [Suspect]
     Indication: PRODUCT USED FOR UNKNOWN INDICATION
     Dates: end: 20050130
  4. AMPHETAMINES [Suspect]
     Indication: PRODUCT USED FOR UNKNOWN INDICATION
     Dates: end: 20050130
  5. METHAMPHETAMINE HYDROCHLORIDE [Suspect]
     Indication: PRODUCT USED FOR UNKNOWN INDICATION
     Dates: end: 20050130
  6. COCAINE [Suspect]
     Indication: PRODUCT USED FOR UNKNOWN INDICATION
     Dates: end: 20050130

REACTIONS (4)
  - TOXICITY TO VARIOUS AGENTS [None]
  - ACCIDENTAL DEATH [None]
  - COMA [None]
  - MULTIPLE DRUG OVERDOSE [None]
